FAERS Safety Report 7894180 (Version 2)
Quarter: 2012Q4

REPORT INFORMATION
  Report Type: 
  Country: VE (occurrence: VE)
  Receive Date: 20110411
  Receipt Date: 20121124
  Transmission Date: 20130627
  Serious: Yes (Death, Other)
  Sender: FDA-Public Use
  Company Number: PHHY2011VE29450

PATIENT
  Sex: Male

DRUGS (3)
  1. DIOVAN [Suspect]
     Indication: HYPERTENSION
     Dosage: 160 mg
     Route: 048
  2. DIOVAN HCT [Suspect]
     Indication: HYPERTENSION
     Dosage: 1 DF(160/12.5 mg), daily
     Route: 048
     Dates: end: 201103
  3. CHEMOTHERAPEUTICS [Suspect]
     Indication: NEOPLASM MALIGNANT
     Dosage: UNK UKN, UNK
     Dates: start: 2007

REACTIONS (4)
  - Metastases to liver [Fatal]
  - Neoplasm malignant [Fatal]
  - Colon cancer [Not Recovered/Not Resolved]
  - Type 2 diabetes mellitus [Not Recovered/Not Resolved]
